FAERS Safety Report 25317356 (Version 1)
Quarter: 2025Q2

REPORT INFORMATION
  Report Type: Spontaneous
  Country: HU (occurrence: HU)
  Receive Date: 20250515
  Receipt Date: 20250515
  Transmission Date: 20250716
  Serious: Yes (Hospitalization, Other)
  Sender: ROCHE
  Company Number: HU-ROCHE-10000270712

PATIENT

DRUGS (1)
  1. OCREVUS [Suspect]
     Active Substance: OCRELIZUMAB
     Indication: Product used for unknown indication
     Route: 050

REACTIONS (6)
  - Discomfort [Unknown]
  - Hypoaesthesia [Unknown]
  - Walking aid user [Unknown]
  - Gait disturbance [Unknown]
  - Magnetic resonance imaging spinal abnormal [Unknown]
  - Muscular weakness [Unknown]
